FAERS Safety Report 5493737-7 (Version None)
Quarter: 2007Q4

REPORT INFORMATION
  Report Type: 
  Country: None (occurrence: None)
  Receive Date: 20071015
  Receipt Date: 20070615
  Transmission Date: 20080405
  Serious: No
  Sender: FDA-Public Use
  Company Number: 2007SP002274

PATIENT
  Age: 33 Year
  Sex: Female
  Weight: 78.9259 kg

DRUGS (1)
  1. LUNESTA [Suspect]
     Indication: SLEEP DISORDER
     Dosage: 3 MG; PRN;  ORAL
     Route: 048
     Dates: start: 20070401

REACTIONS (1)
  - DYSGEUSIA [None]
